FAERS Safety Report 5456293-5 (Version None)
Quarter: 2007Q3

REPORT INFORMATION
  Report Type: 
  Country: None (occurrence: None)
  Receive Date: 20070918
  Receipt Date: 20070330
  Transmission Date: 20080115
  Serious: Yes (Hospitalization)
  Sender: FDA-Public Use
  Company Number: US-ASTRAZENECA-2006UW23510

PATIENT
  Age: 16043 Day
  Sex: Female

DRUGS (4)
  1. SEROQUEL [Suspect]
     Indication: BIPOLAR DISORDER
     Route: 048
     Dates: start: 20020101
  2. GEODON [Concomitant]
  3. RISPERDAL [Concomitant]
  4. ZYPREXA [Concomitant]
     Dates: start: 20000726

REACTIONS (2)
  - DIABETES MELLITUS [None]
  - PANCREATITIS [None]
